FAERS Safety Report 4389837-0 (Version None)
Quarter: 2004Q2

REPORT INFORMATION
  Report Type: 
  Country: None (occurrence: None)
  Receive Date: 20040628
  Receipt Date: 20040621
  Transmission Date: 20050107
  Serious: Yes (Hospitalization, Other)
  Sender: FDA-Public Use
  Company Number: 2004032945

PATIENT
  Age: 53 Year
  Sex: Male
  Weight: 86.1834 kg

DRUGS (8)
  1. LIPITOR [Suspect]
     Indication: BLOOD CHOLESTEROL INCREASED
     Dosage: 10 MG (10 MG, 1 IN 1 D), ORAL
     Route: 048
     Dates: start: 20011101, end: 20040501
  2. RAMIPRIL [Suspect]
     Indication: HYPERTENSION
     Dosage: 2.5 MG (2.5 MG, 1 IN 1 D), ORAL
     Route: 048
     Dates: start: 20030901, end: 20040514
  3. COLESEVELAM (COLESEVELAM) [Concomitant]
  4. TAMSULOSIN (TAMSULOSIN) [Concomitant]
  5. ESOMEPRAZOLE (ESOMEPRAZOLE) [Concomitant]
  6. ACETYLSALICYLIC ACID SRT [Concomitant]
  7. CLOPIDOGREL BISULFATE [Concomitant]
  8. TAMSULOSIN (TAMSULOSIN) [Concomitant]

REACTIONS (3)
  - COUGH [None]
  - MUSCLE CRAMP [None]
  - MYOCARDIAL INFARCTION [None]
